FAERS Safety Report 6136133-1 (Version None)
Quarter: 2009Q1

REPORT INFORMATION
  Report Type: 
  Country: None (occurrence: None)
  Receive Date: 20090330
  Receipt Date: 20090319
  Transmission Date: 20090719
  Serious: Yes (Disabling)
  Sender: FDA-Public Use
  Company Number: FR-AMGEN-US339820

PATIENT
  Sex: Male

DRUGS (4)
  1. ENBREL [Suspect]
     Indication: PSORIASIS
     Route: 058
     Dates: start: 20090201
  2. LERCANIDIPINE [Suspect]
     Route: 065
     Dates: end: 20090318
  3. OLMESARTAN [Concomitant]
     Indication: HYPERTENSION
     Dosage: UNKNOWN
  4. HYDROCHLOROTHIAZIDE [Concomitant]
     Indication: HYPERTENSION
     Dosage: UNKNOWN

REACTIONS (2)
  - OEDEMA PERIPHERAL [None]
  - TENDON PAIN [None]
